FAERS Safety Report 17884593 (Version 1)
Quarter: 2020Q2

REPORT INFORMATION
  Report Type: Other
  Country: SA (occurrence: SA)
  Receive Date: 20200611
  Receipt Date: 20200611
  Transmission Date: 20200714
  Serious: Yes (Life-Threatening, Hospitalization)
  Sender: FDA-Public Use
  Company Number: SA-AJANTA PHARMA USA INC.-2085650

PATIENT
  Age: 46 Year
  Sex: Male

DRUGS (1)
  1. CAPTOPRIL (ANDA 212809) [Suspect]
     Active Substance: CAPTOPRIL

REACTIONS (3)
  - Angioedema [Recovered/Resolved]
  - Accidental overdose [Recovered/Resolved]
  - Acute respiratory failure [Recovered/Resolved]
